FAERS Safety Report 5669367-0 (Version None)
Quarter: 2008Q1

REPORT INFORMATION
  Report Type: 
  Country: None (occurrence: None)
  Receive Date: 20080317
  Receipt Date: 20080303
  Transmission Date: 20080703
  Serious: Yes (Death, Life-Threatening, Hospitalization)
  Sender: FDA-Public Use
  Company Number: SE-MERCK-0803SWE00003

PATIENT
  Sex: Female

DRUGS (2)
  1. ZOCOR [Suspect]
     Route: 065
     Dates: end: 20080222
  2. ZOCOR [Suspect]
     Route: 065
     Dates: start: 20080223

REACTIONS (2)
  - AORTIC ANEURYSM [None]
  - WRONG TECHNIQUE IN DRUG USAGE PROCESS [None]
